FAERS Safety Report 4388196-1 (Version None)
Quarter: 2004Q2

REPORT INFORMATION
  Report Type: 
  Country: None (occurrence: None)
  Receive Date: 20040625
  Receipt Date: 20040614
  Transmission Date: 20050107
  Serious: Yes (Hospitalization, Other)
  Sender: FDA-Public Use
  Company Number: 2004038419

PATIENT
  Age: 48 Year
  Sex: Female
  Weight: 63.5036 kg

DRUGS (2)
  1. NEURONTIN [Suspect]
     Indication: BIPOLAR DISORDER
     Dates: start: 20030101
  2. GEODON [Suspect]
     Indication: ILL-DEFINED DISORDER
     Dates: start: 20030101

REACTIONS (11)
  - ABASIA [None]
  - BIPOLAR DISORDER [None]
  - BRAIN DAMAGE [None]
  - DIZZINESS [None]
  - FEELING ABNORMAL [None]
  - HOMELESS [None]
  - PAIN [None]
  - PAIN IN EXTREMITY [None]
  - SYNCOPE [None]
  - VICTIM OF CRIME [None]
  - VISION BLURRED [None]
